FAERS Safety Report 9763566 (Version 2)
Quarter: 2013Q4

REPORT INFORMATION
  Report Type: Spontaneous
  Country: PL (occurrence: PL)
  Receive Date: 20131216
  Receipt Date: 20131224
  Transmission Date: 20140711
  Serious: Yes (Other)
  Sender: FDA-Public Use
  Company Number: CHNY2013PL002828

PATIENT
  Sex: Male

DRUGS (4)
  1. DICLOFENAC [Suspect]
     Indication: OSTEOARTHRITIS
     Route: 065
  2. METFORMIN [Concomitant]
  3. IPRATROPIUM BROMIDE [Concomitant]
  4. RAMIPRIL [Concomitant]

REACTIONS (8)
  - Atonic urinary bladder [Unknown]
  - Dysuria [Unknown]
  - Renal disorder [Unknown]
  - Tubulointerstitial nephritis [Unknown]
  - Wheezing [Unknown]
  - Muscular weakness [Unknown]
  - Prostatomegaly [Unknown]
  - Urinary tract infection [Unknown]
